FAERS Safety Report 5546442-2 (Version None)
Quarter: 2007Q4

REPORT INFORMATION
  Report Type: 
  Country: None (occurrence: None)
  Receive Date: 20071206
  Receipt Date: 20071206
  Transmission Date: 20080405
  Serious: Yes (Hospitalization)
  Sender: FDA-Public Use
  Company Number: None

PATIENT
  Age: 51 Year
  Sex: Male
  Weight: 118 kg

DRUGS (2)
  1. LOVENOX [Suspect]
     Indication: KNEE ARTHROPLASTY
     Dosage: 40 MG  Q24H  SQ
     Route: 058
     Dates: start: 20071115, end: 20071124
  2. LOVENOX [Suspect]
     Indication: THROMBOSIS PROPHYLAXIS
     Dosage: 40 MG  Q24H  SQ
     Route: 058
     Dates: start: 20071115, end: 20071124

REACTIONS (1)
  - HEPARIN-INDUCED THROMBOCYTOPENIA [None]
